FAERS Safety Report 5518114-1 (Version None)
Quarter: 2007Q4

REPORT INFORMATION
  Report Type: 
  Country: None (occurrence: None)
  Receive Date: 20071113
  Receipt Date: 20071030
  Transmission Date: 20080405
  Serious: Yes (Other)
  Sender: FDA-Public Use
  Company Number: 100#03#2007-04515

PATIENT
  Age: 93 Year
  Sex: Female

DRUGS (6)
  1. TRAMADOL HCL [Suspect]
     Indication: SCIATICA
     Dosage: 100 MG FOUR TIMES A DAY ORAL
     Route: 048
     Dates: start: 20070822, end: 20070907
  2. ADCAL-D3 (CALCIUM CARBONATE, COLECALCIFEROL) [Concomitant]
  3. ALENDRONIC ACID (ALENDRONIC ACID) (ALENDRONIC ACID) [Concomitant]
  4. METOCLOPRAMIDE [Concomitant]
  5. PARACETAMOL (PARACETAMOL) (PARACETAMOL) [Concomitant]
  6. ZOPICLONE (ZOPICLONE) (ZOPICLONE) [Concomitant]

REACTIONS (1)
  - JAUNDICE [None]
